FAERS Safety Report 9469402 (Version 1)
Quarter: 2013Q3

REPORT INFORMATION
  Report Type: Spontaneous
  Country: US (occurrence: US)
  Receive Date: 20130821
  Receipt Date: 20130821
  Transmission Date: 20140515
  Serious: Yes (Other)
  Sender: FDA-Public Use
  Company Number: US-ROCHE-1262694

PATIENT
  Age: 56 Year
  Sex: Male

DRUGS (6)
  1. AVASTIN [Suspect]
     Indication: PRODUCT USED FOR UNKNOWN INDICATION
     Route: 065
  2. XELODA [Concomitant]
     Indication: PRODUCT USED FOR UNKNOWN INDICATION
     Route: 065
  3. GABAPENTIN [Concomitant]
     Indication: NEUROPATHY PERIPHERAL
     Route: 065
  4. 5-FLUOROURACIL [Concomitant]
     Route: 065
  5. FOLINIC ACID [Concomitant]
     Route: 065
  6. OXALIPLATIN [Concomitant]
     Route: 065

REACTIONS (2)
  - Disease progression [Unknown]
  - Drug ineffective [Unknown]
